FAERS Safety Report 8181990-0 (Version None)
Quarter: 2012Q1

REPORT INFORMATION
  Report Type: 
  Country: None (occurrence: None)
  Receive Date: 20120302
  Receipt Date: 20120223
  Transmission Date: 20120608
  Serious: Yes (Other)
  Sender: FDA-Public Use
  Company Number: PHHY2012ES015831

PATIENT
  Age: 65 Year
  Sex: Female

DRUGS (4)
  1. ADENOSINE [Interacting]
     Indication: TACHYCARDIA
     Dosage: 6 MG, UNK
     Route: 042
  2. ADENOSINE [Interacting]
     Dosage: 12 MG, UNK
     Route: 042
  3. ATENOLOL [Suspect]
     Indication: TACHYCARDIA
     Dosage: 50 MG, QD
     Route: 042
  4. ADENOSINE [Interacting]
     Dosage: 6 MG, UNK
     Route: 042

REACTIONS (7)
  - PALPITATIONS [None]
  - COUGH [None]
  - BREATH SOUNDS ABNORMAL [None]
  - WHEEZING [None]
  - TACHYCARDIA [None]
  - DYSPNOEA [None]
  - SUPRAVENTRICULAR TACHYCARDIA [None]
